FAERS Safety Report 5030043-9 (Version None)
Quarter: 2006Q2

REPORT INFORMATION
  Report Type: 
  Country: None (occurrence: None)
  Receive Date: 20060614
  Receipt Date: 20060602
  Transmission Date: 20061013
  Serious: Yes (Other)
  Sender: FDA-Public Use
  Company Number: 2006072124

PATIENT
  Sex: Male

DRUGS (2)
  1. LIPITOR [Suspect]
     Indication: ILL-DEFINED DISORDER
     Dosage: 10 MG (DAILY), ORAL
     Route: 048
     Dates: start: 20060301, end: 20060301
  2. TAMSULOSIN HCL [Suspect]
     Indication: ILL-DEFINED DISORDER
     Dosage: 0.2 MG (DAY), ORAL
     Route: 048

REACTIONS (1)
  - DERMATOMYOSITIS [None]
